FAERS Safety Report 14720817 (Version 5)
Quarter: 2024Q4

REPORT INFORMATION
  Report Type: Spontaneous
  Country: PL (occurrence: PL)
  Receive Date: 20180405
  Receipt Date: 20241011
  Transmission Date: 20250115
  Serious: Yes (Death, Hospitalization, Other)
  Sender: MYLAN
  Company Number: PL-APOTEX-2017AP021137

PATIENT
  Age: 44 Year
  Sex: Female

DRUGS (17)
  1. AZATHIOPRINE [Suspect]
     Active Substance: AZATHIOPRINE
     Indication: Systemic lupus erythematosus
     Dosage: UNK
     Route: 065
  2. ACYCLOVIR [Suspect]
     Active Substance: ACYCLOVIR
     Indication: Retinitis
     Dosage: UNK
     Route: 048
  3. ACYCLOVIR [Suspect]
     Active Substance: ACYCLOVIR
     Indication: Retinitis
     Dosage: UNK
     Route: 031
  4. CHLOROQUINE PHOSPHATE [Suspect]
     Active Substance: CHLOROQUINE PHOSPHATE
     Indication: Systemic lupus erythematosus
     Dosage: UNK
     Route: 065
  5. GANCICLOVIR [Suspect]
     Active Substance: GANCICLOVIR
     Indication: Retinitis
     Dosage: UNK, BIWEEKLY (2MG/0.1 ML TWICE WEEKLY FOR 3 WEEKS)
  6. ACYCLOVIR [Concomitant]
     Active Substance: ACYCLOVIR
     Indication: Product used for unknown indication
     Dosage: UNK
     Route: 042
  7. METHYLPREDNISOLONE [Concomitant]
     Active Substance: METHYLPREDNISOLONE
     Indication: Systemic lupus erythematosus
     Dosage: UNK
     Route: 042
  8. GANCICLOVIR [Concomitant]
     Active Substance: GANCICLOVIR
     Dosage: UNK, BIWEEKLY,  2MG/0.1 ML TWICE WEEKLY FOR 3 WEEKS
     Route: 065
  9. CHLOROQUINE PHOSPHATE [Concomitant]
     Active Substance: CHLOROQUINE PHOSPHATE
     Indication: Lupus nephritis
     Dosage: UNK
     Route: 065
  10. CYCLOPHOSPHAMIDE [Concomitant]
     Active Substance: CYCLOPHOSPHAMIDE
     Indication: Lupus nephritis
     Dosage: 750 MILLIGRAM, QD (750 MG PER DAY)
     Route: 042
  11. MYCOPHENOLATE MOFETIL [Concomitant]
     Active Substance: MYCOPHENOLATE MOFETIL
     Indication: Lupus nephritis
     Dosage: 2 GRAM, QD, 2 G PER DAY
     Route: 042
  12. PREDNISONE [Concomitant]
     Active Substance: PREDNISONE
     Indication: Lupus nephritis
     Dosage: 20 MILLIGRAM, QD, 20 MG, PER DAY
     Route: 048
  13. PREDNISONE [Concomitant]
     Active Substance: PREDNISONE
     Indication: Systemic lupus erythematosus
     Dosage: 40 MILLIGRAM, QD, 40 MG, QD
     Route: 048
  14. PREDNISONE [Concomitant]
     Active Substance: PREDNISONE
     Dosage: 12 MILLIGRAM, QD
     Route: 048
  15. CHLOROQUINE DIPHOSPHATE [Concomitant]
     Active Substance: CHLOROQUINE PHOSPHATE
     Indication: Systemic lupus erythematosus
     Dosage: 40 MILLIGRAM, QD (40 MG, ONCE DAILY)
     Route: 048
  16. CHLOROQUINE DIPHOSPHATE [Concomitant]
     Active Substance: CHLOROQUINE PHOSPHATE
     Dosage: UNK
     Route: 065
  17. AZATHIOPRINE [Concomitant]
     Active Substance: AZATHIOPRINE
     Indication: Systemic lupus erythematosus
     Dosage: UNK
     Route: 065

REACTIONS (8)
  - Death [Fatal]
  - Central nervous system lymphoma [Unknown]
  - Varicella zoster virus infection [Unknown]
  - Necrotising herpetic retinopathy [Unknown]
  - Visual impairment [Unknown]
  - Product use in unapproved indication [Unknown]
  - Drug ineffective [Unknown]
  - Off label use [Unknown]
